FAERS Safety Report 18986827 (Version 1)
Quarter: 2021Q1

REPORT INFORMATION
  Report Type: Spontaneous
  Country: US (occurrence: US)
  Receive Date: 20210309
  Receipt Date: 20210309
  Transmission Date: 20210420
  Serious: No
  Sender: FDA-Public Use
  Company Number: None

PATIENT
  Sex: Female
  Weight: 56 kg

DRUGS (4)
  1. DAUNORUBICIN [Suspect]
     Active Substance: DAUNORUBICIN
  2. VINCRISTINE SULFATE. [Concomitant]
     Active Substance: VINCRISTINE SULFATE
  3. CYTARABINE. [Concomitant]
     Active Substance: CYTARABINE
  4. DEXAMETHASONE. [Concomitant]
     Active Substance: DEXAMETHASONE

REACTIONS (6)
  - Headache [None]
  - Periorbital swelling [None]
  - Epistaxis [None]
  - Intracranial hypotension [None]
  - Subdural haemorrhage [None]
  - Disseminated intravascular coagulation [None]

NARRATIVE: CASE EVENT DATE: 20210304
